FAERS Safety Report 5135854-7 (Version None)
Quarter: 2006Q4

REPORT INFORMATION
  Report Type: 
  Country: None (occurrence: None)
  Receive Date: 20061026
  Receipt Date: 20060804
  Transmission Date: 20070319
  Serious: Yes (Congenital Anomaly)
  Sender: FDA-Public Use
  Company Number: GB-ABBOTT-06P-167-0339731-00

PATIENT
  Sex: Male

DRUGS (3)
  1. NORVIR [Suspect]
     Indication: DRUG EXPOSURE DURING PREGNANCY
  2. LAMIVUDINE + ZIDOVUDINE [Suspect]
     Indication: DRUG EXPOSURE DURING PREGNANCY
  3. SAQUINAVIR MESILATE [Suspect]
     Indication: DRUG EXPOSURE DURING PREGNANCY

REACTIONS (1)
  - CLEFT PALATE [None]
